FAERS Safety Report 16379522 (Version 1)
Quarter: 2019Q2

REPORT INFORMATION
  Report Type: Spontaneous
  Country: US (occurrence: US)
  Receive Date: 20190424
  Receipt Date: 20190424
  Transmission Date: 20190711
  Serious: Yes (Death)
  Sender: FDA-Public Use
  Company Number: None

PATIENT
  Age: 54 Year
  Sex: Female

DRUGS (5)
  1. FENTANYL. [Concomitant]
     Active Substance: FENTANYL
  2. HYDROMORPHONE [Concomitant]
     Active Substance: HYDROMORPHONE
  3. FASLODEX [Concomitant]
     Active Substance: FULVESTRANT
  4. METOLAZONE. [Concomitant]
     Active Substance: METOLAZONE
  5. CAPECITABINE. [Suspect]
     Active Substance: CAPECITABINE
     Indication: BONE CANCER
     Route: 048

REACTIONS (1)
  - Death [None]
